FAERS Safety Report 12680378 (Version 1)
Quarter: 2016Q3

REPORT INFORMATION
  Report Type: Spontaneous
  Country: US (occurrence: US)
  Receive Date: 20160824
  Receipt Date: 20160824
  Transmission Date: 20161109
  Serious: No
  Sender: FDA-Public Use
  Company Number: US-GLAXOSMITHKLINE-US2016122755

PATIENT
  Age: 67 Year
  Sex: Female

DRUGS (1)
  1. VOLTAREN [Suspect]
     Active Substance: DICLOFENAC SODIUM
     Indication: BACK PAIN
     Dosage: UNK UNK, BID
     Route: 061
     Dates: start: 20160819

REACTIONS (4)
  - Drug administered at inappropriate site [Unknown]
  - Drug effect incomplete [Unknown]
  - Off label use [Unknown]
  - Inappropriate schedule of drug administration [Unknown]
